FAERS Safety Report 8784689 (Version 1)
Quarter: 2012Q4

REPORT INFORMATION
  Report Type: Spontaneous
  Country: US (occurrence: None)
  Receive Date: 20120828
  Receipt Date: 20120828
  Transmission Date: 20130627
  Serious: Yes (Other)
  Sender: FDA-Public Use
  Company Number: 2012SA059329

PATIENT
  Age: 49 Year
  Sex: Female

DRUGS (1)
  1. AVOBENZONE\HOMOSALATE\OCTISALATE\OCTOCRYLENE\OXYBENZONE [Suspect]
     Route: 061
     Dates: start: 20120811

REACTIONS (5)
  - Hypersensitivity [None]
  - Application site pruritus [None]
  - Chemical injury [None]
  - Eye swelling [None]
  - Fatigue [None]
